FAERS Safety Report 8307881-X (Version None)
Quarter: 2012Q2

REPORT INFORMATION
  Report Type: 
  Country: None (occurrence: None)
  Receive Date: 20120424
  Receipt Date: 20120417
  Transmission Date: 20120825
  Serious: Yes (Death, Hospitalization)
  Sender: FDA-Public Use
  Company Number: US-CELGENEUS-163-21880-08071707

PATIENT
  Sex: Female
  Weight: 94 kg

DRUGS (17)
  1. REVLIMID [Suspect]
     Indication: AMYLOIDOSIS
     Dosage: 15 MILLIGRAM
     Route: 048
     Dates: start: 20080507, end: 20080624
  2. ASPIRIN [Concomitant]
     Dosage: 81 MILLIGRAM
     Route: 048
  3. LEXAPRO [Concomitant]
     Dosage: E10G
     Route: 048
  4. WELCHOL [Concomitant]
     Dosage: 625 MILLIGRAM
     Route: 048
  5. CYTOXAN [Suspect]
     Indication: AMYLOIDOSIS
     Dosage: 300 MILLIGRAM
     Route: 048
     Dates: start: 20080507, end: 20080624
  6. OXYGEN [Concomitant]
     Route: 055
     Dates: end: 20080625
  7. VITAMIN B-12 [Concomitant]
     Dosage: 500 MILLIGRAM
     Route: 048
  8. DEXAMETHASONE [Suspect]
     Indication: AMYLOIDOSIS
     Dosage: 40 MILLIGRAM
     Route: 048
     Dates: start: 20080507, end: 20080624
  9. ACIPHEX [Concomitant]
     Dosage: 20
     Route: 048
  10. ANTIEMETICS [Concomitant]
     Route: 065
  11. TYLENOL (CAPLET) [Concomitant]
     Route: 048
  12. POTASSIUM CHLORIDE [Concomitant]
     Dosage: 40 MILLIEQUIVALENTS
     Route: 048
  13. MULTI-VITAMINS [Concomitant]
     Route: 048
  14. IRON FERROUS SULFITE [Concomitant]
     Dosage: 325 MILLIGRAM
     Route: 048
  15. PROCHLORPERAZINE [Concomitant]
     Indication: NAUSEA
     Dosage: 10 MILLIGRAM
     Route: 048
  16. FISH OIL [Concomitant]
     Dosage: 1000 MILLIGRAM
     Route: 048
  17. SHARK CARTILAGE POWDER [Concomitant]
     Dosage: 750 MILLIGRAM
     Route: 048

REACTIONS (8)
  - PLATELET COUNT DECREASED [None]
  - CARDIAC FAILURE CONGESTIVE [None]
  - OEDEMA PERIPHERAL [None]
  - CARDIAC AMYLOIDOSIS [None]
  - FUNGAL INFECTION [None]
  - FLUID RETENTION [None]
  - DISEASE PROGRESSION [None]
  - DYSPNOEA [None]
